FAERS Safety Report 17407233 (Version 1)
Quarter: 2020Q1

REPORT INFORMATION
  Report Type: Spontaneous
  Country: US (occurrence: US)
  Receive Date: 20191111
  Receipt Date: 20191111
  Transmission Date: 20200409
  Serious: Yes (Other)
  Sender: FDA-Public Use
  Company Number: None

PATIENT
  Age: 41 Year
  Sex: Female

DRUGS (4)
  1. TEGRETOL [Suspect]
     Active Substance: CARBAMAZEPINE
  2. PRISTIQ EXTENDED-RELEASE [Suspect]
     Active Substance: DESVENLAFAXINE SUCCINATE
  3. LAMICTAL [Suspect]
     Active Substance: LAMOTRIGINE
  4. NJOY VAPE-ACE PODS, BLUEBERRY [DEVICE\NICOTINE] [Suspect]
     Active Substance: DEVICE\NICOTINE
     Route: 055

REACTIONS (1)
  - Seizure [None]

NARRATIVE: CASE EVENT DATE: 20191014
